FAERS Safety Report 19788604 (Version 4)
Quarter: 2023Q1

REPORT INFORMATION
  Report Type: Report from Study
  Country: CA (occurrence: CA)
  Receive Date: 20210904
  Receipt Date: 20230215
  Transmission Date: 20230418
  Serious: Yes (Other)
  Sender: FDA-Public Use
  Company Number: CA-CELLTRION INC.-2021CA011875

PATIENT

DRUGS (3)
  1. TRUXIMA [Suspect]
     Active Substance: RITUXIMAB-ABBS
     Indication: Rheumatoid arthritis
     Dosage: 1000 MG, (FREQUENCY: INFUSION#1)
     Route: 042
     Dates: start: 20210825
  2. TRUXIMA [Suspect]
     Active Substance: RITUXIMAB-ABBS
     Dosage: 1000 MG, (FREQUENCY: INFUSION#3)
     Route: 042
     Dates: start: 20210825
  3. TRUXIMA [Suspect]
     Active Substance: RITUXIMAB-ABBS
     Dosage: 1000 MG (FREQUENCY: INFUSION#5)
     Route: 042
     Dates: start: 20210825

REACTIONS (8)
  - Urticaria [Recovered/Resolved]
  - Pruritus [Recovered/Resolved]
  - Pruritus [Recovered/Resolved]
  - Throat tightness [Unknown]
  - Throat irritation [Recovered/Resolved]
  - Heart rate increased [Unknown]
  - Blood pressure decreased [Unknown]
  - Expired product administered [Unknown]

NARRATIVE: CASE EVENT DATE: 20210825
